FAERS Safety Report 6806686-6 (Version None)
Quarter: 2010Q2

REPORT INFORMATION
  Report Type: 
  Country: None (occurrence: None)
  Receive Date: 20100629
  Receipt Date: 20080428
  Transmission Date: 20101027
  Serious: No
  Sender: FDA-Public Use
  Company Number: US-PFIZER INC-2008033432

PATIENT
  Sex: Female
  Weight: 63.5 kg

DRUGS (3)
  1. XANAX [Suspect]
     Indication: PANIC ATTACK
  2. ALPRAZOLAM [Suspect]
     Indication: PANIC ATTACK
     Dates: start: 20080401
  3. PAXIL CR [Concomitant]

REACTIONS (3)
  - DRUG EFFECT DECREASED [None]
  - MIDDLE INSOMNIA [None]
  - PANIC ATTACK [None]
